FAERS Safety Report 4807813-2 (Version None)
Quarter: 2005Q4

REPORT INFORMATION
  Report Type: 
  Country: None (occurrence: None)
  Receive Date: 20051021
  Receipt Date: 20010821
  Transmission Date: 20060501
  Serious: No
  Sender: FDA-Public Use
  Company Number: US_010872306

PATIENT
  Age: 82 Year
  Sex: Female

DRUGS (2)
  1. ZYPREXA [Suspect]
     Dates: start: 20010701
  2. HALDOL DECANOATE (HALOPERIDOL DECANOATE) [Concomitant]

REACTIONS (1)
  - NEUTROPENIA [None]
